FAERS Safety Report 5378165-7 (Version None)
Quarter: 2007Q3

REPORT INFORMATION
  Report Type: 
  Country: None (occurrence: None)
  Receive Date: 20070705
  Receipt Date: 20070627
  Transmission Date: 20080115
  Serious: Yes (Hospitalization)
  Sender: FDA-Public Use
  Company Number: PHBS2006JP14358

PATIENT
  Age: 65 Year
  Sex: Female
  Weight: 48 kg

DRUGS (3)
  1. AREDIA [Suspect]
     Dosage: 90 MG, UNK
     Route: 042
     Dates: start: 20050304, end: 20060601
  2. ZOMETA [Suspect]
     Indication: METASTASES TO BONE
     Dosage: 4 MG, UNK
     Route: 042
     Dates: start: 20060724
  3. TAXOTERE [Concomitant]
     Indication: METASTASES TO BONE
     Dosage: 40 MG
     Route: 042
     Dates: start: 20060724

REACTIONS (12)
  - ABSCESS JAW [None]
  - BONE SWELLING [None]
  - DENTAL CARIES [None]
  - DENTAL TREATMENT [None]
  - INFLAMMATION [None]
  - OSTEOMYELITIS [None]
  - OSTEONECROSIS [None]
  - PURULENT DISCHARGE [None]
  - RASH PUSTULAR [None]
  - TOOTH EXTRACTION [None]
  - TOOTHACHE [None]
  - WHITE BLOOD CELL COUNT INCREASED [None]
